FAERS Safety Report 24777659 (Version 1)
Quarter: 2024Q4

REPORT INFORMATION
  Report Type: Spontaneous
  Country: US (occurrence: None)
  Receive Date: 20241224
  Receipt Date: 20241224
  Transmission Date: 20250115
  Serious: Yes (Death)
  Sender: Public
  Company Number: None

PATIENT
  Age: 79 Year
  Sex: Female

DRUGS (1)
  1. LENALIDOMIDE [Suspect]
     Active Substance: LENALIDOMIDE
     Indication: Plasma cell myeloma
     Dosage: FREQUENCY : DAILY;?
     Route: 048
     Dates: start: 20240429, end: 20241223

REACTIONS (5)
  - Cardiac arrest [None]
  - Pulmonary embolism [None]
  - Lactic acidosis [None]
  - Acute kidney injury [None]
  - Pyelonephritis [None]

NARRATIVE: CASE EVENT DATE: 20241223
